FAERS Safety Report 6589082-9 (Version None)
Quarter: 2010Q1

REPORT INFORMATION
  Report Type: 
  Country: None (occurrence: None)
  Receive Date: 20100218
  Receipt Date: 20100209
  Transmission Date: 20100710
  Serious: Yes (Other)
  Sender: FDA-Public Use
  Company Number: GXKR2010JP01706

PATIENT
  Age: 62 Year
  Sex: Female

DRUGS (2)
  1. CARBOPLATIN SANDOZ (NGX) [Suspect]
  2. DOCETAXEL [Concomitant]
     Route: 041

REACTIONS (3)
  - OROPHARYNGEAL DISCOMFORT [None]
  - SHOCK [None]
  - URINE OUTPUT DECREASED [None]
